FAERS Safety Report 23986642 (Version 2)
Quarter: 2025Q1

REPORT INFORMATION
  Report Type: Spontaneous
  Country: US (occurrence: US)
  Receive Date: 20240618
  Receipt Date: 20250226
  Transmission Date: 20250408
  Serious: Yes (Other)
  Sender: ABBVIE
  Company Number: US-ABBVIE-5802762

PATIENT
  Age: 40 Year
  Sex: Female

DRUGS (1)
  1. VRAYLAR [Suspect]
     Active Substance: CARIPRAZINE
     Indication: Major depression
     Route: 048

REACTIONS (2)
  - Loss of consciousness [Unknown]
  - Blood pressure orthostatic abnormal [Recovered/Resolved]
